FAERS Safety Report 12833343 (Version 7)
Quarter: 2017Q1

REPORT INFORMATION
  Report Type: Report from Study
  Country: US (occurrence: US)
  Receive Date: 20161010
  Receipt Date: 20170307
  Transmission Date: 20170428
  Serious: Yes (Death, Hospitalization, Other)
  Sender: FDA-Public Use
  Company Number: US-ACTELION-A-US2016-140746

PATIENT
  Age: 70 Year
  Sex: Male
  Weight: 110.2 kg

DRUGS (24)
  1. PLAVIX [Concomitant]
     Active Substance: CLOPIDOGREL BISULFATE
  2. UPTRAVI [Suspect]
     Active Substance: SELEXIPAG
     Dosage: 800 MCG, BID
     Route: 048
  3. RANEXA [Concomitant]
     Active Substance: RANOLAZINE
  4. NOVOLOG [Concomitant]
     Active Substance: INSULIN ASPART
  5. UPTRAVI [Suspect]
     Active Substance: SELEXIPAG
     Dosage: 400 MCG, BID
     Route: 048
     Dates: start: 20160727
  6. LIDOCAINE VISCOUS [Concomitant]
     Active Substance: LIDOCAINE HYDROCHLORIDE
  7. UPTRAVI [Suspect]
     Active Substance: SELEXIPAG
     Dosage: 1000 MCG, BID
     Route: 048
     Dates: start: 20160825
  8. ADVAIR HFA [Concomitant]
     Active Substance: FLUTICASONE PROPIONATE\SALMETEROL XINAFOATE
  9. OXYCODONE [Concomitant]
     Active Substance: OXYCODONE
  10. NUVIGIL [Concomitant]
     Active Substance: ARMODAFINIL
  11. CELEBREX [Concomitant]
     Active Substance: CELECOXIB
  12. METFORMIN [Concomitant]
     Active Substance: METFORMIN HYDROCHLORIDE
  13. SIMVASTATIN. [Concomitant]
     Active Substance: SIMVASTATIN
  14. OXYBUTYNIN CHLORIDE. [Concomitant]
     Active Substance: OXYBUTYNIN CHLORIDE
  15. NEURONTIN [Concomitant]
     Active Substance: GABAPENTIN
  16. OMEPRAZOLE. [Concomitant]
     Active Substance: OMEPRAZOLE
  17. UPTRAVI [Suspect]
     Active Substance: SELEXIPAG
     Indication: PULMONARY ARTERIAL HYPERTENSION
     Dosage: 1200 MCG, BID
     Route: 048
  18. FUROSEMIDE. [Concomitant]
     Active Substance: FUROSEMIDE
  19. LEVEMIR [Concomitant]
     Active Substance: INSULIN DETEMIR
  20. LOSARTAN POTASSIUM. [Concomitant]
     Active Substance: LOSARTAN POTASSIUM
  21. UPTRAVI [Suspect]
     Active Substance: SELEXIPAG
     Dosage: 1400 MCG, BID
     Route: 048
  22. UPTRAVI [Suspect]
     Active Substance: SELEXIPAG
     Dosage: 200 UNK, UNK
     Route: 048
  23. OPSUMIT [Suspect]
     Active Substance: MACITENTAN
     Indication: PULMONARY ARTERIAL HYPERTENSION
     Dosage: 10 MG, UNK
     Route: 048
     Dates: start: 20161130
  24. ASA [Concomitant]
     Active Substance: ASPIRIN

REACTIONS (18)
  - Arteriogram coronary [Recovered/Resolved]
  - Diarrhoea [Unknown]
  - Nausea [Unknown]
  - Fluid retention [Unknown]
  - Fatigue [Unknown]
  - Chest pain [Recovered/Resolved]
  - Somnolence [Unknown]
  - Transient ischaemic attack [Unknown]
  - Asthenia [Not Recovered/Not Resolved]
  - Carotid artery stenosis [Recovered/Resolved]
  - Musculoskeletal pain [Unknown]
  - Death [Fatal]
  - Unresponsive to stimuli [Unknown]
  - Stent placement [Recovered/Resolved]
  - Headache [Unknown]
  - Neck pain [Unknown]
  - Cardiac stress test [Unknown]
  - General physical health deterioration [Unknown]

NARRATIVE: CASE EVENT DATE: 201608
